FAERS Safety Report 8452448-6 (Version None)
Quarter: 2012Q2

REPORT INFORMATION
  Report Type: 
  Country: None (occurrence: None)
  Receive Date: 20120620
  Receipt Date: 20120411
  Transmission Date: 20120825
  Serious: No
  Sender: FDA-Public Use
  Company Number: US-VERTEX PHARMACEUTICALS INC.-AE-2012-005223

PATIENT
  Sex: Female
  Weight: 44.492 kg

DRUGS (7)
  1. INCIVEK [Suspect]
     Indication: HEPATITIS C
     Route: 048
     Dates: start: 20120123
  2. PEGASYS [Concomitant]
     Indication: HEPATITIS C
     Route: 058
     Dates: start: 20120123, end: 20120129
  3. RIBAVIRIN [Concomitant]
     Route: 048
     Dates: start: 20120223
  4. PEGASYS [Concomitant]
     Route: 058
     Dates: start: 20120130, end: 20120205
  5. LEXAPRO [Concomitant]
     Indication: DEPRESSION
     Route: 048
  6. PEGASYS [Concomitant]
     Route: 058
     Dates: start: 20120206
  7. RIBAVIRIN [Concomitant]
     Indication: HEPATITIS C
     Route: 048
     Dates: start: 20120123, end: 20120223

REACTIONS (1)
  - DYSPNOEA EXERTIONAL [None]
